FAERS Safety Report 8515062-X (Version None)
Quarter: 2012Q3

REPORT INFORMATION
  Report Type: 
  Country: None (occurrence: None)
  Receive Date: 20120717
  Receipt Date: 20120710
  Transmission Date: 20120928
  Serious: No
  Sender: FDA-Public Use
  Company Number: US-009507513-0711USA02523

PATIENT

DRUGS (5)
  1. PREVACID [Concomitant]
  2. MK-9379 [Concomitant]
  3. CORTICOSTEROIDS (UNSPECIFIED) [Suspect]
  4. DIOVAN [Concomitant]
  5. JANUVIA [Suspect]
     Indication: DIABETES MELLITUS
     Dosage: 100 MG, QD
     Route: 048
     Dates: start: 20110101

REACTIONS (5)
  - NECK PAIN [None]
  - HAEMORRHAGE [None]
  - RASH MACULAR [None]
  - BLOOD GLUCOSE INCREASED [None]
  - DIZZINESS [None]
